FAERS Safety Report 6710028-4 (Version None)
Quarter: 2010Q2

REPORT INFORMATION
  Report Type: 
  Country: None (occurrence: None)
  Receive Date: 20100430
  Receipt Date: 20100422
  Transmission Date: 20101027
  Serious: Yes (Hospitalization)
  Sender: FDA-Public Use
  Company Number: 2010SP023250

PATIENT
  Age: 87 Year
  Sex: Female

DRUGS (13)
  1. MIRTAZAPINE [Suspect]
     Indication: DEPRESSION
     Dosage: 15 MG; QD; PO
     Route: 048
  2. NEULEPTIL (PERICIAZINE) [Suspect]
     Indication: ABNORMAL BEHAVIOUR
     Dosage: ; BID; PO
     Route: 048
     Dates: start: 20090417, end: 20090417
  3. ALPRAZOLAM (OTHER MFR) (NO PREF. NAME) [Suspect]
     Indication: ANXIETY
     Dosage: 1.5 MG; QD; PO
     Route: 048
     Dates: start: 20090417
  4. MEMANTINE HCL [Suspect]
     Indication: DEMENTIA ALZHEIMER'S TYPE
     Dosage: 5 MG; QD; PO
     Route: 048
     Dates: end: 20090424
  5. NEXIUM [Concomitant]
  6. SPECIAFOLDINE [Concomitant]
  7. DIFFU-K [Concomitant]
  8. MOTILIUM [Concomitant]
  9. DEBRIDAT [Concomitant]
  10. DOLIPRANE [Concomitant]
  11. DIAMICRON [Concomitant]
  12. RIVOTRIL [Concomitant]
  13. EQUANIL [Concomitant]

REACTIONS (6)
  - APATHY [None]
  - CEREBRAL CALCIFICATION [None]
  - DEMYELINATION [None]
  - DEPRESSED LEVEL OF CONSCIOUSNESS [None]
  - RENAL IMPAIRMENT [None]
  - SOMNOLENCE [None]
